FAERS Safety Report 11642081 (Version 2)
Quarter: 2015Q4

REPORT INFORMATION
  Report Type: Spontaneous
  Country: JP (occurrence: JP)
  Receive Date: 20151019
  Receipt Date: 20151026
  Transmission Date: 20160304
  Serious: Yes (Death)
  Sender: FDA-Public Use
  Company Number: JP-SA-2015SA154278

PATIENT
  Age: 69 Year
  Sex: Female

DRUGS (3)
  1. CICLOSPORIN [Concomitant]
     Active Substance: CYCLOSPORINE
  2. ANTI-THYMOCYTE GLOBULIN (RABBIT)/RABBIT ANTI-HUMAN THYMOCYTE IMMUNOGLOBULIN [Suspect]
     Active Substance: LAPINE T-LYMPHOCYTE IMMUNE GLOBULIN
     Indication: APLASTIC ANAEMIA
     Route: 065
  3. PREDNISOLONE. [Concomitant]
     Active Substance: PREDNISOLONE

REACTIONS (9)
  - Pyrexia [Unknown]
  - Hypoglycaemia [Unknown]
  - Lymphoproliferative disorder [Fatal]
  - Cytomegalovirus infection [None]
  - Renal impairment [Fatal]
  - Lymphocytosis [Unknown]
  - Stenotrophomonas infection [Fatal]
  - Hepatomegaly [Fatal]
  - Epstein-Barr virus infection [Fatal]
